FAERS Safety Report 11625900 (Version 2)
Quarter: 2021Q4

REPORT INFORMATION
  Report Type: Spontaneous
  Country: AU (occurrence: AU)
  Receive Date: 20151013
  Receipt Date: 20211103
  Transmission Date: 20220303
  Serious: Yes (Other)
  Sender: FDA-Public Use
  Company Number: AU-ALLERGAN-1520129US

PATIENT
  Sex: Male

DRUGS (4)
  1. BRIMONIDINE [Suspect]
     Active Substance: BRIMONIDINE TARTRATE
     Indication: Glaucoma
     Dosage: UNK, BID
     Route: 047
  2. TIMOLOL [Concomitant]
     Active Substance: TIMOLOL
     Indication: Glaucoma
     Dosage: UNK
     Route: 047
  3. BRINZOLAMIDE [Concomitant]
     Active Substance: BRINZOLAMIDE
     Indication: Glaucoma
     Dosage: UNK UNK, BID
     Route: 047
  4. BIMATOPROST [Concomitant]
     Active Substance: BIMATOPROST
     Indication: Glaucoma
     Dosage: UNK UNK, QHS
     Route: 047

REACTIONS (2)
  - Uveitis [Recovered/Resolved]
  - Conjunctivitis [Recovered/Resolved]
